FAERS Safety Report 4629058-1 (Version None)
Quarter: 2005Q2

REPORT INFORMATION
  Report Type: 
  Country: None (occurrence: None)
  Receive Date: 20050404
  Receipt Date: 20050404
  Transmission Date: 20051028
  Serious: Yes (Hospitalization)
  Sender: FDA-Public Use
  Company Number: None

PATIENT
  Age: 72 Year
  Sex: Female
  Weight: 57.5 kg

DRUGS (2)
  1. CARBOPLATIN [Suspect]
     Indication: OVARIAN CANCER
     Dosage: 450 MG DAY1 IV
     Route: 042
     Dates: start: 20041206
  2. PACLITAXEL [Suspect]
     Indication: OVARIAN CANCER
     Dosage: 280 MG DAY1 IV
     Route: 042
     Dates: start: 20041206

REACTIONS (2)
  - NAUSEA [None]
  - VOMITING [None]
